FAERS Safety Report 4390798-3 (Version None)
Quarter: 2004Q3

REPORT INFORMATION
  Report Type: 
  Country: None (occurrence: None)
  Receive Date: 20040707
  Receipt Date: 20040419
  Transmission Date: 20050211
  Serious: Yes (Other)
  Sender: FDA-Public Use
  Company Number: US-BRISTOL-MYERS SQUIBB COMPANY-12564449

PATIENT

DRUGS (3)
  1. PROLIXIN DECANOATE [Suspect]
     Indication: SCHIZOPHRENIA
     Route: 051
  2. NIACIN [Concomitant]
  3. FLONASE [Concomitant]

REACTIONS (1)
  - OVERDOSE [None]
